FAERS Safety Report 6728556-4 (Version None)
Quarter: 2010Q2

REPORT INFORMATION
  Report Type: 
  Country: None (occurrence: None)
  Receive Date: 20100517
  Receipt Date: 20100507
  Transmission Date: 20101027
  Serious: Yes (Other)
  Sender: FDA-Public Use
  Company Number: FR-PFIZER INC-2010057827

PATIENT
  Age: 60 Year
  Sex: Female

DRUGS (1)
  1. TAHOR [Suspect]
     Dosage: 10 MG, UNK

REACTIONS (2)
  - DRY MOUTH [None]
  - MALAISE [None]
